FAERS Safety Report 16104763 (Version 1)
Quarter: 2019Q1

REPORT INFORMATION
  Report Type: Spontaneous
  Country: US (occurrence: US)
  Receive Date: 20190219
  Receipt Date: 20190219
  Transmission Date: 20190418
  Serious: Yes (Hospitalization)
  Sender: FDA-Public Use
  Company Number: None

PATIENT
  Age: 35 Year
  Sex: Female

DRUGS (11)
  1. AMLODIPINE [Concomitant]
     Active Substance: AMLODIPINE BESYLATE
  2. PROBIOTIC [Concomitant]
     Active Substance: PROBIOTICS NOS
  3. TYENOL [Concomitant]
  4. REBIF [Suspect]
     Active Substance: INTERFERON BETA-1A
     Indication: MULTIPLE SCLEROSIS
     Route: 058
     Dates: start: 20160129
  5. VITAMIN B12 [Concomitant]
     Active Substance: CYANOCOBALAMIN
  6. NORETHIDRON [Concomitant]
  7. PREDNISONE. [Concomitant]
     Active Substance: PREDNISONE
  8. GABAPENTIN. [Concomitant]
     Active Substance: GABAPENTIN
  9. HYDROCHLOROT [Suspect]
     Active Substance: HYDROCHLOROTHIAZIDE
  10. MICROGESTIN [Concomitant]
     Active Substance: ETHINYL ESTRADIOL\NORETHINDRONE ACETATE
  11. NORLYDA [Concomitant]
     Active Substance: NORETHINDRONE

REACTIONS (2)
  - Multiple sclerosis relapse [None]
  - Therapy cessation [None]
